FAERS Safety Report 8297315-6 (Version None)
Quarter: 2012Q2

REPORT INFORMATION
  Report Type: 
  Country: None (occurrence: None)
  Receive Date: 20120416
  Receipt Date: 20120406
  Transmission Date: 20120825
  Serious: Yes (Hospitalization, Other)
  Sender: FDA-Public Use
  Company Number: 2012SP006680

PATIENT
  Age: 50 Year
  Sex: Female
  Weight: 64 kg

DRUGS (5)
  1. PEG-INTRON [Suspect]
     Dosage: 1.5 MCG/KG;QW;SC
     Route: 058
     Dates: start: 20120116, end: 20120123
  2. REBETOL [Suspect]
     Indication: HEPATITIS C
     Dosage: 800 MG;QD;PO
     Route: 048
     Dates: start: 20120116, end: 20120126
  3. TELAVIC (TELAPREVIR) (INVESTIGATIONAL DRUG) [Suspect]
     Indication: HEPATITIS C
     Dosage: 2250 MG;QD;PO
     Route: 048
     Dates: start: 20120116, end: 20120126
  4. MEDETAX [Concomitant]
  5. MICOMBI (TELMISARTAN HYDROCHLOROTHIAZIDE) [Concomitant]

REACTIONS (10)
  - ASPARTATE AMINOTRANSFERASE INCREASED [None]
  - RASH [None]
  - ALANINE AMINOTRANSFERASE INCREASED [None]
  - VOMITING [None]
  - TOXIC SKIN ERUPTION [None]
  - LIVER DISORDER [None]
  - ERYTHEMA [None]
  - PRURITUS [None]
  - PYREXIA [None]
  - NAUSEA [None]
